FAERS Safety Report 6138634-9 (Version None)
Quarter: 2009Q1

REPORT INFORMATION
  Report Type: 
  Country: None (occurrence: None)
  Receive Date: 20090331
  Receipt Date: 20090318
  Transmission Date: 20090719
  Serious: Yes (Hospitalization, Other)
  Sender: FDA-Public Use
  Company Number: US-ELI_LILLY_AND_COMPANY-US200903004602

PATIENT
  Sex: Male

DRUGS (3)
  1. CYMBALTA [Suspect]
     Indication: NEUROPATHY PERIPHERAL
     Dosage: 60 MG, 2/D
     Dates: start: 20081113, end: 20090301
  2. LOPRESSOR [Concomitant]
  3. LIPITOR [Concomitant]

REACTIONS (9)
  - ANOREXIA [None]
  - DRUG WITHDRAWAL SYNDROME [None]
  - FATIGUE [None]
  - INSOMNIA [None]
  - MUSCLE TWITCHING [None]
  - NAUSEA [None]
  - POSTURE ABNORMAL [None]
  - SURGERY [None]
  - WOUND INFECTION STAPHYLOCOCCAL [None]
